FAERS Safety Report 16838958 (Version 2)
Quarter: 2019Q4

REPORT INFORMATION
  Report Type: Spontaneous
  Country: AU (occurrence: AU)
  Receive Date: 20190923
  Receipt Date: 20191223
  Transmission Date: 20200122
  Serious: Yes (Other)
  Sender: FDA-Public Use
  Company Number: AU-ELI_LILLY_AND_COMPANY-AU201909006894

PATIENT
  Age: 79 Year
  Sex: Female

DRUGS (1)
  1. ZYPREXA RELPREVV [Suspect]
     Active Substance: OLANZAPINE PAMOATE
     Indication: SCHIZOPHRENIA
     Dosage: UNK, UNKNOWN
     Route: 030
     Dates: start: 2018

REACTIONS (3)
  - Immediate post-injection reaction [Recovered/Resolved]
  - Somnolence [Recovered/Resolved]
  - Loss of consciousness [Recovered/Resolved]

NARRATIVE: CASE EVENT DATE: 20190826
